FAERS Safety Report 6701897-2 (Version None)
Quarter: 2010Q2

REPORT INFORMATION
  Report Type: 
  Country: None (occurrence: None)
  Receive Date: 20100429
  Receipt Date: 20100419
  Transmission Date: 20101027
  Serious: Yes (Other)
  Sender: FDA-Public Use
  Company Number: JP-PFIZER INC-2010030366

PATIENT
  Age: 80 Year
  Sex: Female

DRUGS (5)
  1. ZITHROMAC SR [Suspect]
     Indication: BRONCHITIS
     Dosage: 2000 MG, 1X/DAY
     Route: 048
     Dates: start: 20100212, end: 20100212
  2. AMARYL [Concomitant]
     Dosage: UNK
     Route: 048
     Dates: start: 20090615
  3. ALDACTONE [Concomitant]
     Dosage: UNK
     Route: 048
     Dates: start: 20090615
  4. LASIX [Concomitant]
     Dosage: UNK
     Route: 048
     Dates: start: 20090615
  5. SITAGLIPTIN PHOSPHATE [Concomitant]
     Indication: BRONCHITIS
     Dosage: UNK
     Route: 048
     Dates: start: 20090615

REACTIONS (4)
  - APHTHOUS STOMATITIS [None]
  - LIP ULCERATION [None]
  - STOMATITIS [None]
  - TONGUE ULCERATION [None]
